FAERS Safety Report 15991274 (Version 3)
Quarter: 2019Q2

REPORT INFORMATION
  Report Type: Spontaneous
  Country: FR (occurrence: PL)
  Receive Date: 20190221
  Receipt Date: 20190516
  Transmission Date: 20190711
  Serious: Yes (Hospitalization, Other)
  Sender: FDA-Public Use
  Company Number: FR-MYLANLABS-2019M1013491

PATIENT
  Age: 68 Year
  Sex: Female

DRUGS (12)
  1. AMOXICILLIN. [Suspect]
     Active Substance: AMOXICILLIN
     Indication: PHARYNGITIS
     Dosage: 2 GRAM, QD
     Route: 065
  2. METFORMIN [Suspect]
     Active Substance: METFORMIN HYDROCHLORIDE
     Indication: TYPE 2 DIABETES MELLITUS
     Dosage: 3 GRAM, QD
     Route: 065
  3. INSULIN W/ISOPHANE INSULIN [Concomitant]
     Indication: DIABETES MELLITUS
     Dosage: 32 INTERNATIONAL UNIT, QD
     Route: 065
  4. INSULIN                            /01223201/ [Concomitant]
     Indication: TYPE 2 DIABETES MELLITUS
     Dosage: 36 INTERNATIONAL UNIT, QD
     Route: 065
  5. INSULIN W/ISOPHANE INSULIN [Concomitant]
     Dosage: 18 INTERNATIONAL UNIT, QD
     Route: 065
  6. DICLOFENAC [Concomitant]
     Active Substance: DICLOFENAC
     Indication: ARTHRALGIA
  7. ISOPHANE INSULIN [Concomitant]
     Active Substance: INSULIN NOS
     Indication: DIABETES MELLITUS
     Dosage: UNK (18 UNITS)
  8. INSULIN                            /01223201/ [Concomitant]
     Dosage: UNK UNK, BID (30/70; 32 UNITS)
  9. INSULIN                            /01223201/ [Concomitant]
     Indication: DIABETES MELLITUS
     Dosage: 64 INTERNATIONAL UNIT, QD
     Route: 065
  10. ASPIRIN                            /00002701/ [Concomitant]
     Active Substance: ASPIRIN
     Indication: PRODUCT USED FOR UNKNOWN INDICATION
     Dosage: 75 MILLIGRAM, QD
     Route: 065
  11. DICLOFENAC [Concomitant]
     Active Substance: DICLOFENAC
     Indication: MUSCULOSKELETAL PAIN
     Dosage: 150 MILLIGRAM, QD
     Route: 065
  12. ROSUVASTATIN. [Concomitant]
     Active Substance: ROSUVASTATIN
     Indication: PRODUCT USED FOR UNKNOWN INDICATION
     Dosage: 10 MILLIGRAM, QD
     Route: 065

REACTIONS (27)
  - Renal cyst [Recovering/Resolving]
  - Nausea [Recovered/Resolved]
  - Blood osmolarity increased [Unknown]
  - Glomerular filtration rate decreased [Recovered/Resolved]
  - Asthenia [Recovered/Resolved]
  - Anuria [Recovering/Resolving]
  - Blood pressure decreased [Recovering/Resolving]
  - Vomiting [Recovered/Resolved]
  - Anion gap increased [Recovered/Resolved]
  - Urea urine increased [Recovered/Resolved]
  - Blood creatinine increased [Recovered/Resolved]
  - Amylase increased [Recovered/Resolved]
  - Contraindicated product administered [Unknown]
  - Pulmonary function test abnormal [Unknown]
  - Blood bicarbonate decreased [Recovered/Resolved]
  - Abdominal pain upper [Unknown]
  - Lactic acidosis [Recovered/Resolved]
  - Overdose [Unknown]
  - Hyperglycaemia [Recovered/Resolved]
  - pH urine decreased [Recovered/Resolved]
  - Blood potassium increased [Recovered/Resolved]
  - Chest pain [Recovered/Resolved]
  - Abdominal pain [Recovered/Resolved]
  - Blood gases abnormal [Unknown]
  - Blood lactic acid increased [Unknown]
  - Renal failure [Recovered/Resolved]
  - Toxicity to various agents [Recovered/Resolved]
